FAERS Safety Report 10171209 (Version 1)
Quarter: 2014Q2

REPORT INFORMATION
  Report Type: Spontaneous
  Country: US (occurrence: None)
  Receive Date: 20140430
  Receipt Date: 20140430
  Transmission Date: 20141212
  Serious: Yes (Other)
  Sender: FDA-Public Use
  Company Number: 2013US0445

PATIENT
  Age: 9 Year
  Sex: Male

DRUGS (1)
  1. ORFADIN [Suspect]
     Indication: TYROSINAEMIA
     Dosage: 4 DOSAGE FORMS, 2 IN 1 DAY.
     Dates: start: 20040811

REACTIONS (1)
  - Photophobia [None]
